FAERS Safety Report 5734368-0 (Version None)
Quarter: 2008Q2

REPORT INFORMATION
  Report Type: 
  Country: None (occurrence: None)
  Receive Date: 20080512
  Receipt Date: 20080502
  Transmission Date: 20081010
  Serious: Yes (Other)
  Sender: FDA-Public Use
  Company Number: GB-LLY01-GB200608000857

PATIENT
  Age: 58 Year
  Sex: Female

DRUGS (5)
  1. ZYPREXA [Suspect]
     Indication: SCHIZOPHRENIA
     Dosage: 30 MG, UNK
     Route: 048
  2. ZYPREXA [Suspect]
     Dosage: 40 MG, UNK
     Route: 048
  3. BENDROFLUAZIDE [Concomitant]
     Indication: JOINT SWELLING
     Dosage: 2.5 MG, UNK
     Route: 048
     Dates: start: 20060503
  4. ACETAMINOPHEN W/ CODEINE [Concomitant]
  5. PRIADEL [Concomitant]
     Indication: MOOD ALTERED
     Dosage: 600 MG, UNK
     Route: 048
     Dates: start: 20040922

REACTIONS (2)
  - DEEP VEIN THROMBOSIS [None]
  - OVERDOSE [None]
